FAERS Safety Report 8604248 (Version 4)
Quarter: 2012Q4

REPORT INFORMATION
  Report Type: 
  Country: US (occurrence: US)
  Receive Date: 20120608
  Receipt Date: 20121115
  Transmission Date: 20130627
  Serious: Yes (Hospitalization)
  Sender: FDA-Public Use
  Company Number: US-BAYER-2012-055391

PATIENT
  Age: 46 Year
  Sex: Female
  Weight: 63.49 kg

DRUGS (20)
  1. YAZ [Suspect]
     Indication: PREMENSTRUAL SYNDROME
     Dosage: UNK
     Dates: start: 20090901, end: 20090901
  2. YAZ [Suspect]
     Indication: PREMENSTRUAL SYNDROME
     Dosage: UNK
     Dates: start: 2009, end: 2011
  3. FLUOXETINE [Concomitant]
     Dosage: 20 mg, daily
     Route: 048
     Dates: start: 20111206
  4. LEXAPRO [Concomitant]
     Dosage: 10 mg, UNK
     Dates: start: 20101130, end: 20111109
  5. ALPRAZOLAM [Concomitant]
     Indication: ANXIETY
     Dosage: 0.25 mg, UNK
     Route: 048
     Dates: start: 20101130
  6. MELOXICAM [Concomitant]
     Dosage: 7.5 to 15 mg
     Dates: start: 20110309, end: 20111213
  7. METOPROLOL [Concomitant]
     Dosage: 12.5 mg daily to every 12 hours
     Route: 048
     Dates: start: 20111219
  8. BUMETANIDE [Concomitant]
     Dosage: 0.5 mg, UNK
     Route: 048
     Dates: start: 20111110
  9. NITROFURANTOIN [Concomitant]
     Dosage: 100 mg, UNK
     Dates: start: 20111111
  10. AMITRIPTYLINE [Concomitant]
     Dosage: 25 mg, UNK
     Dates: start: 20111121
  11. SPIRONOLACTONE W/HYDROCHLOROTHIAZIDE [Concomitant]
     Dosage: 25/25
     Dates: start: 20120110
  12. PROZAC [Concomitant]
     Indication: DEPRESSION
     Dosage: UNK
     Route: 048
     Dates: start: 20120131
  13. PROZAC [Concomitant]
     Indication: PREMENSTRUAL SYNDROME
  14. MACROBID [Concomitant]
     Dosage: UNK
     Dates: start: 20120131
  15. FUROSEMIDE [Concomitant]
     Dosage: 40 mg, daily
     Dates: start: 20120116
  16. HYDROCHLOROTHIAZIDE [Concomitant]
     Dosage: 12.5 mg, UNK
     Route: 048
     Dates: start: 20111013
  17. DIFLUCAN [Concomitant]
     Dosage: UNK
     Route: 048
     Dates: start: 20111006
  18. GELATIN [Concomitant]
     Dosage: 650 mg, QID
     Route: 048
     Dates: start: 20120110
  19. TYLENOL [Concomitant]
     Indication: PAIN NOS
     Dosage: PRN, 1-2 weekly
  20. IBUPROFEN [Concomitant]
     Indication: PAIN
     Dosage: PRN, 1-2 weekly

REACTIONS (18)
  - Deep vein thrombosis [None]
  - Pulmonary embolism [None]
  - Mood swings [None]
  - Communication disorder [None]
  - Hypertension [None]
  - Fatigue [None]
  - Depression [None]
  - Dyspnoea [None]
  - Pain in extremity [None]
  - Oedema peripheral [None]
  - Pain [None]
  - Injury [None]
  - General physical health deterioration [None]
  - Anxiety [None]
  - Anhedonia [None]
  - Emotional distress [None]
  - Pain [None]
  - Impaired reasoning [None]
